FAERS Safety Report 10170790 (Version 2)
Quarter: 2014Q2

REPORT INFORMATION
  Report Type: Spontaneous
  Country: FR (occurrence: FR)
  Receive Date: 20140514
  Receipt Date: 20140516
  Transmission Date: 20141212
  Serious: Yes (Death, Hospitalization)
  Sender: FDA-Public Use
  Company Number: FR-PFIZER INC-2014130961

PATIENT
  Age: 77 Year
  Sex: Female

DRUGS (7)
  1. CORDARONE [Suspect]
     Indication: ATRIAL FIBRILLATION
     Dosage: 200 MG, DAILY
     Route: 048
     Dates: start: 200701, end: 201404
  2. FUROSEMIDE [Concomitant]
     Indication: HYPERTENSION
     Dosage: UNK
     Dates: start: 201005
  3. ATENOLOL [Concomitant]
     Indication: HYPERTENSION
     Dosage: UNK
     Dates: start: 201005
  4. GLIMEPIRIDE [Concomitant]
     Dosage: UNK
     Dates: start: 201005
  5. METFORMIN [Concomitant]
     Dosage: UNK
  6. ATORVASTATIN [Concomitant]
     Indication: DYSLIPIDAEMIA
     Dosage: UNK
     Dates: start: 201306
  7. RAMIPRIL [Concomitant]
     Indication: HYPERTENSION
     Dosage: UNK
     Dates: start: 201308

REACTIONS (2)
  - Lung disorder [Fatal]
  - Cardiac arrest [Fatal]
